FAERS Safety Report 6460072-X (Version None)
Quarter: 2009Q4

REPORT INFORMATION
  Report Type: 
  Country: None (occurrence: None)
  Receive Date: 20091129
  Receipt Date: 20091123
  Transmission Date: 20100525
  Serious: Yes (Hospitalization)
  Sender: FDA-Public Use
  Company Number: PHEH2009US13815

PATIENT
  Sex: Male

DRUGS (3)
  1. EXJADE [Suspect]
     Indication: MYELODYSPLASTIC SYNDROME
     Dosage: 1500 MG DAILY
     Route: 048
     Dates: start: 20090730, end: 20090828
  2. EXJADE [Suspect]
     Indication: ACUTE MYELOID LEUKAEMIA
  3. EXJADE [Suspect]
     Indication: IRON OVERLOAD

REACTIONS (3)
  - BONE MARROW TRANSPLANT [None]
  - DRUG INTOLERANCE [None]
  - STEM CELL TRANSPLANT [None]
